FAERS Safety Report 12528642 (Version 1)
Quarter: 2016Q3

REPORT INFORMATION
  Report Type: Spontaneous
  Country: US (occurrence: US)
  Receive Date: 20160705
  Receipt Date: 20160705
  Transmission Date: 20161109
  Serious: No
  Sender: FDA-Public Use
  Company Number: US-SA-2015SA092699

PATIENT
  Age: 53 Year
  Sex: Male

DRUGS (10)
  1. BENADRYL [Concomitant]
     Active Substance: DIPHENHYDRAMINE HYDROCHLORIDE
  2. JEVTANA [Suspect]
     Active Substance: CABAZITAXEL
     Indication: PROSTATE CANCER
     Route: 042
     Dates: start: 20150624, end: 20150624
  3. COMPAZINE [Concomitant]
     Active Substance: PROCHLORPERAZINE MALEATE
  4. FLOMAX [Concomitant]
     Active Substance: TAMSULOSIN HYDROCHLORIDE
  5. MIRALAX [Concomitant]
     Active Substance: POLYETHYLENE GLYCOL 3350
  6. PERCOCET [Concomitant]
     Active Substance: ACETAMINOPHEN\OXYCODONE HYDROCHLORIDE
  7. METOPROLOL. [Concomitant]
     Active Substance: METOPROLOL
  8. LISINOPRIL. [Concomitant]
     Active Substance: LISINOPRIL
  9. PREDNISONE. [Concomitant]
     Active Substance: PREDNISONE
  10. MS CONTIN [Concomitant]
     Active Substance: MORPHINE SULFATE

REACTIONS (4)
  - Peripheral swelling [Recovering/Resolving]
  - Pain [Unknown]
  - Infusion site extravasation [Unknown]
  - Erythema [Unknown]

NARRATIVE: CASE EVENT DATE: 20150624
